FAERS Safety Report 6344545-6 (Version None)
Quarter: 2009Q3

REPORT INFORMATION
  Report Type: 
  Country: None (occurrence: None)
  Receive Date: 20090908
  Receipt Date: 20090831
  Transmission Date: 20100115
  Serious: Yes (Other)
  Sender: FDA-Public Use
  Company Number: US-JNJCH-2009023852

PATIENT
  Sex: Male

DRUGS (3)
  1. ZYRTEC [Suspect]
     Indication: DRUG HYPERSENSITIVITY
     Dosage: TEXT:UNKNOWN
     Route: 048
  2. PEPCID AC [Suspect]
     Indication: DRUG USE FOR UNKNOWN INDICATION
     Dosage: TEXT:1-2 TABLETS 1-2X A DAY
     Route: 048
  3. PREDNISONE TAB [Concomitant]
     Indication: DRUG HYPERSENSITIVITY
     Dosage: TEXT:UNKNOWN
     Route: 065

REACTIONS (4)
  - DYSPHONIA [None]
  - MYALGIA [None]
  - OFF LABEL USE [None]
  - THROAT TIGHTNESS [None]
